FAERS Safety Report 5014969-8 (Version None)
Quarter: 2006Q2

REPORT INFORMATION
  Report Type: 
  Country: None (occurrence: None)
  Receive Date: 20060414
  Receipt Date: 20060222
  Transmission Date: 20061013
  Serious: No
  Sender: FDA-Public Use
  Company Number: 2006SP000901

PATIENT
  Age: 51 Year
  Sex: Female
  Weight: 68.0396 kg

DRUGS (13)
  1. LUNESTA [Suspect]
     Indication: MIGRAINE
     Dosage: SEE IMAGE
     Route: 048
     Dates: start: 20050601, end: 20050801
  2. LUNESTA [Suspect]
     Indication: MIGRAINE
     Dosage: SEE IMAGE
     Route: 048
     Dates: start: 20050801
  3. CYMBALTA [Suspect]
     Indication: MIGRAINE
     Dosage: SEE IMAGE
     Route: 048
     Dates: start: 20050801, end: 20051101
  4. CYMBALTA [Suspect]
     Indication: MIGRAINE
     Dosage: SEE IMAGE
     Route: 048
     Dates: start: 20051101, end: 20060201
  5. CYMBALTA [Suspect]
     Indication: MIGRAINE
     Dosage: SEE IMAGE
     Route: 048
     Dates: start: 20060201
  6. AMBIEN [Concomitant]
  7. COENZYME Q10 [Concomitant]
  8. HYDROCHLOROTHIAZIDE [Concomitant]
  9. ATENOLOL [Concomitant]
  10. VYTORIN [Concomitant]
  11. VISTARIL [Concomitant]
  12. ZANAFLEX [Concomitant]
  13. PROPOXYPHENE NAPSYLATE W/ ACETAMINOPHEN [Concomitant]

REACTIONS (2)
  - HALLUCINATION [None]
  - MIGRAINE [None]
